FAERS Safety Report 4285141-4 (Version None)
Quarter: 2004Q1

REPORT INFORMATION
  Report Type: 
  Country: None (occurrence: None)
  Receive Date: 20040204
  Receipt Date: 20040123
  Transmission Date: 20041129
  Serious: Yes (Hospitalization)
  Sender: FDA-Public Use
  Company Number: FR-BRISTOL-MYERS SQUIBB COMPANY-12485215

PATIENT
  Age: 59 Year
  Sex: Male

DRUGS (6)
  1. VIDEX [Suspect]
     Route: 048
     Dates: start: 20021206, end: 20030408
  2. REBETOL [Suspect]
     Indication: HEPATITIS C
     Route: 048
     Dates: start: 20021218, end: 20030429
  3. VIREAD [Suspect]
     Route: 048
     Dates: start: 20021206, end: 20030408
  4. VIRAFERONPEG [Suspect]
     Indication: HEPATITIS C
     Dates: start: 20021218
  5. ZERIT [Concomitant]
     Dates: start: 20031206
  6. EPIVIR [Concomitant]
     Dates: start: 20031206

REACTIONS (2)
  - BLOOD CREATININE INCREASED [None]
  - PANCREATITIS [None]
